FAERS Safety Report 5629909-8 (Version None)
Quarter: 2008Q1

REPORT INFORMATION
  Report Type: 
  Country: None (occurrence: None)
  Receive Date: 20080218
  Receipt Date: 20080213
  Transmission Date: 20080703
  Serious: Yes (Hospitalization, Other)
  Sender: FDA-Public Use
  Company Number: PHNR2008AU00475

PATIENT
  Sex: Female

DRUGS (6)
  1. SYNTOCINON [Suspect]
     Indication: THIRD STAGE POSTPARTUM HAEMORRHAGE
     Dosage: 5 IU, UNK
     Route: 042
     Dates: start: 20080104
  2. METOCLOPRAMIDE [Concomitant]
     Dosage: 10 MG, ONCE/SINGLE
     Dates: start: 20080104, end: 20080104
  3. CEPHALEXIN [Concomitant]
     Dosage: 1 G, ONCE/SINGLE
     Dates: start: 20080104, end: 20080104
  4. GRANISETRON [Concomitant]
     Dosage: 1 MG, ONCE/SINGLE
     Dates: start: 20080104, end: 20080104
  5. PARACETAMOL [Concomitant]
     Dosage: 1 G, 4 HOURLY
     Dates: start: 20080104, end: 20080109
  6. DICLOFENAC SODIUM [Concomitant]
     Dosage: 100 MG, 12 TH HOURLY
     Dates: start: 20080104, end: 20080109

REACTIONS (1)
  - POSTPARTUM HAEMORRHAGE [None]
